FAERS Safety Report 14634080 (Version 1)
Quarter: 2018Q1

REPORT INFORMATION
  Report Type: Spontaneous
  Country: GB (occurrence: FR)
  Receive Date: 20180314
  Receipt Date: 20180314
  Transmission Date: 20180509
  Serious: Yes (Hospitalization)
  Sender: FDA-Public Use
  Company Number: FR-FRESENIUS KABI-FK201802842

PATIENT
  Age: 56 Year
  Sex: Female
  Weight: 61 kg

DRUGS (5)
  1. MALACEF [Suspect]
     Active Substance: ARTESUNATE
     Indication: PLASMODIUM FALCIPARUM INFECTION
     Route: 042
     Dates: start: 20180115, end: 20180120
  2. ONDANSETRON (MANUFACTURER UNKNOWN) [Suspect]
     Active Substance: ONDANSETRON
     Indication: VOMITING
     Route: 042
     Dates: start: 20180119, end: 20180122
  3. DOMPERIDONE [Suspect]
     Active Substance: DOMPERIDONE
     Indication: VOMITING
     Route: 048
     Dates: start: 20180121, end: 20180122
  4. EURARTESIM 320 MG/40 MG, COMPRIME PELLICULE [Suspect]
     Active Substance: ARTENIMOL\PIPERAQUINE PHOSPHATE
     Indication: PLASMODIUM FALCIPARUM INFECTION
     Route: 048
     Dates: start: 20180120, end: 20180122
  5. CEFTRIAXONE SODIQUE [Suspect]
     Active Substance: CEFTRIAXONE SODIUM
     Indication: ANTIBIOTIC THERAPY
     Route: 042
     Dates: start: 20180115, end: 20180220

REACTIONS (1)
  - Haemolytic anaemia [Recovered/Resolved]

NARRATIVE: CASE EVENT DATE: 20180203
